FAERS Safety Report 13262428 (Version 1)
Quarter: 2017Q1

REPORT INFORMATION
  Report Type: Report from Study
  Country: AU (occurrence: AU)
  Receive Date: 20170223
  Receipt Date: 20170223
  Transmission Date: 20170428
  Serious: Yes (Other)
  Sender: FDA-Public Use
  Company Number: AU-ROCHE-1895413

PATIENT

DRUGS (6)
  1. FLUOROURACIL. [Suspect]
     Active Substance: FLUOROURACIL
     Indication: NEUROENDOCRINE TUMOUR
     Dosage: 200 MG/M2/24 H
     Route: 042
  2. CAPECITABINE. [Suspect]
     Active Substance: CAPECITABINE
     Dosage: ON DAYS 1-14 COMMENCING 9 DAYS PRIOR TO PRRT.
     Route: 048
  3. CAPECITABINE. [Suspect]
     Active Substance: CAPECITABINE
     Indication: NEUROENDOCRINE TUMOUR
     Dosage: GIVEN 2 DAYS PRIOR AND AND CONTINUED FOR 2 WEEKS.
     Route: 048
  4. TEMOZOLOMIDE. [Suspect]
     Active Substance: TEMOZOLOMIDE
     Indication: NEUROENDOCRINE TUMOUR
     Dosage: 100 MG/M2 BD (75 MG/M2 IF EXTENSIVE PRIOR CHEMOTHERAPY) ON DAYS 10-14, I.E. COMMENCING ON THE DAY OF
     Route: 065
  5. GRANISETRON [Concomitant]
     Active Substance: GRANISETRON
     Indication: PREMEDICATION
     Route: 065
  6. DEXAMETHASONE. [Concomitant]
     Active Substance: DEXAMETHASONE
     Indication: PREMEDICATION
     Route: 065

REACTIONS (5)
  - Glomerular filtration rate abnormal [Unknown]
  - Hyperbilirubinaemia [Unknown]
  - Lymphopenia [Unknown]
  - Leukopenia [Unknown]
  - Thrombocytopenia [Unknown]
